FAERS Safety Report 16454994 (Version 1)
Quarter: 2019Q2

REPORT INFORMATION
  Report Type: Spontaneous
  Country: US (occurrence: US)
  Receive Date: 20190619
  Receipt Date: 20190619
  Transmission Date: 20190711
  Serious: No
  Sender: FDA-Public Use
  Company Number: US-ROCHE-2215822

PATIENT
  Sex: Female

DRUGS (2)
  1. ACTEMRA [Suspect]
     Active Substance: TOCILIZUMAB
     Indication: RHEUMATOID ARTHRITIS
     Route: 058
  2. KEVZARA [Concomitant]
     Active Substance: SARILUMAB
     Dosage: ONGOING: UNKNOWN
     Route: 065

REACTIONS (1)
  - Hypersensitivity [Unknown]
